FAERS Safety Report 11868288 (Version 2)
Quarter: 2016Q3

REPORT INFORMATION
  Report Type: Spontaneous
  Country: FR (occurrence: FR)
  Receive Date: 20151224
  Receipt Date: 20160826
  Transmission Date: 20161109
  Serious: Yes (Hospitalization, Other)
  Sender: FDA-Public Use
  Company Number: FR-BRISTOL-MYERS SQUIBB COMPANY-10348563

PATIENT
  Sex: Female
  Weight: 3.03 kg

DRUGS (9)
  1. VITAMINS [Concomitant]
     Active Substance: VITAMINS
     Indication: PRODUCT USED FOR UNKNOWN INDICATION
     Dosage: EXPOSURE DURING GESTATION.
     Route: 064
  2. ZERIT [Suspect]
     Active Substance: STAVUDINE
     Indication: PROPHYLAXIS AGAINST HIV INFECTION
     Dosage: UNK
     Route: 048
  3. ZERIT [Suspect]
     Active Substance: STAVUDINE
     Indication: PRODUCT USED FOR UNKNOWN INDICATION
     Dosage: UNK
     Route: 064
  4. I RON [Concomitant]
     Active Substance: FERROUS FUMARATE
     Indication: PRODUCT USED FOR UNKNOWN INDICATION
     Dosage: UNK
     Route: 064
  5. VIRACEPT [Suspect]
     Active Substance: NELFINAVIR MESYLATE
     Indication: PRODUCT USED FOR UNKNOWN INDICATION
     Dosage: UNK
     Route: 064
  6. EPIVIR [Suspect]
     Active Substance: LAMIVUDINE
     Indication: PRODUCT USED FOR UNKNOWN INDICATION
     Dosage: UNK
     Route: 064
  7. ZIAGEN [Suspect]
     Active Substance: ABACAVIR SULFATE
     Indication: PRODUCT USED FOR UNKNOWN INDICATION
     Dosage: UNK
     Route: 064
  8. SALBUMOL [Concomitant]
     Active Substance: ALBUTEROL SULFATE
     Indication: PRODUCT USED FOR UNKNOWN INDICATION
     Dosage: UNK
     Route: 064
  9. MAGNE-B6 [Concomitant]
     Active Substance: MAGNESIUM LACTATE\PYRIDOXINE HYDROCHLORIDE
     Indication: PRODUCT USED FOR UNKNOWN INDICATION
     Dosage: UNK
     Route: 064

REACTIONS (11)
  - Cholinergic syndrome [Unknown]
  - Neutropenia [Recovered/Resolved with Sequelae]
  - Mean cell volume increased [Recovered/Resolved with Sequelae]
  - Hypertriglyceridaemia [Recovered/Resolved with Sequelae]
  - Platelet count increased [Recovered/Resolved with Sequelae]
  - Malaise [Unknown]
  - Gastrooesophageal reflux disease [Unknown]
  - Anaemia [Recovered/Resolved with Sequelae]
  - Foetal exposure during pregnancy [Recovered/Resolved]
  - Blood lactic acid increased [Recovered/Resolved with Sequelae]
  - Blood creatine phosphokinase increased [Recovered/Resolved with Sequelae]
